FAERS Safety Report 13915945 (Version 1)
Quarter: 2017Q3

REPORT INFORMATION
  Report Type: Spontaneous
  Country: PT (occurrence: PT)
  Receive Date: 20170829
  Receipt Date: 20170829
  Transmission Date: 20171127
  Serious: Yes (Other)
  Sender: FDA-Public Use
  Company Number: PT-TEVA-801595ACC

PATIENT

DRUGS (3)
  1. TENOFOVIR [Concomitant]
     Active Substance: TENOFOVIR
     Indication: PRODUCT USED FOR UNKNOWN INDICATION
     Route: 065
  2. BENDAMUSTINE HYDROCHLORIDE. [Suspect]
     Active Substance: BENDAMUSTINE HYDROCHLORIDE
     Indication: CHRONIC LYMPHOCYTIC LEUKAEMIA
     Dosage: (C1 MAY-2015 AND C6 29-SEP-2015)
     Route: 042
     Dates: start: 201505, end: 20150929
  3. IBRUTINIB [Concomitant]
     Active Substance: IBRUTINIB
     Indication: CHRONIC LYMPHOCYTIC LEUKAEMIA
     Dosage: 420 MILLIGRAM DAILY;
     Route: 065
     Dates: start: 20170426, end: 20170728

REACTIONS (7)
  - Hyperbilirubinaemia [Unknown]
  - Facial paresis [Unknown]
  - Cytopenia [Unknown]
  - Hepatocellular injury [Unknown]
  - Cellulitis [Unknown]
  - Type 2 diabetes mellitus [Unknown]
  - Haematoma [Unknown]

NARRATIVE: CASE EVENT DATE: 201507
